FAERS Safety Report 20437533 (Version 1)
Quarter: 2022Q1

REPORT INFORMATION
  Report Type: Spontaneous
  Country: JP (occurrence: JP)
  Receive Date: 20220207
  Receipt Date: 20220207
  Transmission Date: 20220423
  Serious: Yes (Other)
  Sender: FDA-Public Use
  Company Number: JP-PFIZER INC-202200172003

PATIENT

DRUGS (2)
  1. METHOTREXATE [Suspect]
     Active Substance: METHOTREXATE
  2. ASPARAGINASE [Suspect]
     Active Substance: ASPARAGINASE

REACTIONS (1)
  - Posterior reversible encephalopathy syndrome [Unknown]
